FAERS Safety Report 6878252-8 (Version None)
Quarter: 2010Q3

REPORT INFORMATION
  Report Type: 
  Country: None (occurrence: None)
  Receive Date: 20100728
  Receipt Date: 20100719
  Transmission Date: 20110219
  Serious: Yes (Other)
  Sender: FDA-Public Use
  Company Number: GB-PFIZER INC-2010090052

PATIENT
  Age: 39 Year
  Sex: Female
  Weight: 57.3 kg

DRUGS (2)
  1. CHAMPIX [Suspect]
     Indication: SMOKING CESSATION THERAPY
     Dosage: 1 MG, 2X/DAY
     Dates: start: 20100322, end: 20100610
  2. MAXALT [Concomitant]
     Indication: MIGRAINE
     Dosage: 10 MG, UNK

REACTIONS (3)
  - DEPRESSION [None]
  - TEARFULNESS [None]
  - THINKING ABNORMAL [None]
